FAERS Safety Report 7866122-8 (Version None)
Quarter: 2011Q4

REPORT INFORMATION
  Report Type: 
  Country: None (occurrence: None)
  Receive Date: 20111028
  Receipt Date: 20110427
  Transmission Date: 20120403
  Serious: No
  Sender: FDA-Public Use
  Company Number: US-GLAXOSMITHKLINE-A0924753A

PATIENT
  Age: 49 Year
  Sex: Female

DRUGS (6)
  1. SIMVASTATIN [Concomitant]
  2. VITAMIN D [Concomitant]
  3. ASCORBIC ACID [Concomitant]
  4. ADVAIR DISKUS 100/50 [Suspect]
     Indication: ASTHMA
     Dosage: 1PUFF PER DAY
     Route: 055
     Dates: start: 20060401, end: 20110420
  5. PRILOSEC [Concomitant]
  6. MULTI-VITAMIN [Concomitant]

REACTIONS (1)
  - DRY MOUTH [None]
